FAERS Safety Report 10694735 (Version 4)
Quarter: 2015Q3

REPORT INFORMATION
  Report Type: Spontaneous
  Country: US (occurrence: US)
  Receive Date: 20150107
  Receipt Date: 20150708
  Transmission Date: 20151125
  Serious: Yes (Other)
  Sender: FDA-Public Use
  Company Number: US-BAYER-2015-001680

PATIENT
  Age: 23 Year
  Sex: Female
  Weight: 56.69 kg

DRUGS (4)
  1. SERTRALINE [Concomitant]
     Active Substance: SERTRALINE HYDROCHLORIDE
  2. MIRENA [Suspect]
     Active Substance: LEVONORGESTREL
     Indication: CONTRACEPTION
     Dosage: 20 MCG/24HR, CONT
     Route: 015
     Dates: start: 20070918, end: 20070925
  3. MIRENA [Suspect]
     Active Substance: LEVONORGESTREL
     Indication: CONTRACEPTION
     Dosage: 20 MCG/24HR, CONT
     Route: 015
     Dates: start: 20071123, end: 20101019
  4. ALPRAZOLAM. [Concomitant]
     Active Substance: ALPRAZOLAM

REACTIONS (11)
  - Depression [None]
  - Anxiety [None]
  - Uterine perforation [None]
  - Menorrhagia [None]
  - Abdominal pain [None]
  - Menstruation irregular [None]
  - Emotional distress [None]
  - Pain [None]
  - Genital haemorrhage [None]
  - Device issue [None]
  - Injury [None]

NARRATIVE: CASE EVENT DATE: 2007
